FAERS Safety Report 21323927 (Version 1)
Quarter: 2022Q3

REPORT INFORMATION
  Report Type: Spontaneous
  Country: US (occurrence: US)
  Receive Date: 20220912
  Receipt Date: 20220912
  Transmission Date: 20221027
  Serious: Yes (Other)
  Sender: FDA-Public Use
  Company Number: US-NOVARTISPH-NVSC2022US198158

PATIENT
  Age: 52 Year
  Sex: Female

DRUGS (6)
  1. METHOTREXATE [Suspect]
     Active Substance: METHOTREXATE
     Indication: Immunoglobulin G4 related disease
     Dosage: HIGH DOSE
     Route: 065
  2. METHOTREXATE [Suspect]
     Active Substance: METHOTREXATE
     Indication: Asthma late onset
  3. METHOTREXATE [Suspect]
     Active Substance: METHOTREXATE
     Indication: Xanthogranuloma
  4. PREDNISONE [Suspect]
     Active Substance: PREDNISONE
     Indication: Immunoglobulin G4 related disease
     Dosage: UNK
     Route: 048
  5. PREDNISONE [Suspect]
     Active Substance: PREDNISONE
     Indication: Asthma late onset
  6. PREDNISONE [Suspect]
     Active Substance: PREDNISONE
     Indication: Xanthogranuloma

REACTIONS (6)
  - Immunoglobulin G4 related disease [Unknown]
  - Disease recurrence [Unknown]
  - Asthma late onset [Unknown]
  - Xanthogranuloma [Unknown]
  - Hepatic enzyme increased [Unknown]
  - Product use in unapproved indication [Unknown]
